FAERS Safety Report 11163475 (Version 3)
Quarter: 2015Q3

REPORT INFORMATION
  Report Type: Spontaneous
  Country: AU (occurrence: AU)
  Receive Date: 20150604
  Receipt Date: 20150803
  Transmission Date: 20151125
  Serious: Yes (Hospitalization, Other)
  Sender: FDA-Public Use
  Company Number: AU-AMGEN-AUSSP2015053431

PATIENT
  Age: 63 Year
  Sex: Female

DRUGS (1)
  1. ENBREL [Suspect]
     Active Substance: ETANERCEPT
     Indication: RHEUMATOID ARTHRITIS
     Dosage: 50 MG, WEEKLY
     Route: 065

REACTIONS (10)
  - Pneumonia [Unknown]
  - Pain in extremity [Unknown]
  - Nausea [Unknown]
  - Nosocomial infection [Unknown]
  - Vomiting [Unknown]
  - Renal failure [Unknown]
  - Infection parasitic [Unknown]
  - Lung abscess [Not Recovered/Not Resolved]
  - Staphylococcal infection [Unknown]
  - Peripheral swelling [Unknown]

NARRATIVE: CASE EVENT DATE: 2015
